FAERS Safety Report 10686626 (Version 2)
Quarter: 2015Q1

REPORT INFORMATION
  Report Type: Spontaneous
  Country: JP (occurrence: JP)
  Receive Date: 20150101
  Receipt Date: 20150101
  Transmission Date: 20150720
  Serious: Yes (Death, Hospitalization)
  Sender: FDA-Public Use
  Company Number: JP-ROCHE-1508726

PATIENT
  Age: 53 Year
  Sex: Female
  Weight: 42 kg

DRUGS (3)
  1. HERCEPTIN [Suspect]
     Active Substance: TRASTUZUMAB
     Indication: BREAST CANCER
     Route: 041
     Dates: start: 20141203, end: 20141203
  2. DOCETAXEL. [Suspect]
     Active Substance: DOCETAXEL
     Indication: BREAST CANCER
     Route: 041
     Dates: start: 20141112, end: 20141203
  3. DEXART [Concomitant]
     Active Substance: DEXAMETHASONE SODIUM PHOSPHATE
     Indication: PROPHYLAXIS
     Route: 042
     Dates: start: 20141203, end: 20141203

REACTIONS (6)
  - Cardiac disorder [Fatal]
  - Decreased appetite [Unknown]
  - Back pain [Unknown]
  - Malaise [Unknown]
  - Sudden death [Fatal]
  - C-reactive protein increased [Unknown]

NARRATIVE: CASE EVENT DATE: 201412
